FAERS Safety Report 7347905-X (Version None)
Quarter: 2011Q1

REPORT INFORMATION
  Report Type: 
  Country: None (occurrence: None)
  Receive Date: 20110302
  Receipt Date: 20110225
  Transmission Date: 20110831
  Serious: Yes (Death)
  Sender: FDA-Public Use
  Company Number: 2011SP000935

PATIENT
  Age: 35 Year
  Sex: Female
  Weight: 48 kg

DRUGS (1)
  1. PUREGON (FOLLITROPIN BETA / 01348901/ ) [Suspect]
     Dosage: 150, 200, 150 IU, QD

REACTIONS (10)
  - ACUTE RESPIRATORY DISTRESS SYNDROME [None]
  - MULTI-ORGAN FAILURE [None]
  - COMA [None]
  - PLEURAL EFFUSION [None]
  - ASCITES [None]
  - DRUG EXPOSURE BEFORE PREGNANCY [None]
  - ABDOMINAL PAIN [None]
  - OVARIAN HYPERSTIMULATION SYNDROME [None]
  - HYDROTHORAX [None]
  - PREGNANCY [None]
